FAERS Safety Report 4322313-4 (Version None)
Quarter: 2004Q1

REPORT INFORMATION
  Report Type: 
  Country: None (occurrence: None)
  Receive Date: 20040319
  Receipt Date: 20040303
  Transmission Date: 20041129
  Serious: Yes (Hospitalization)
  Sender: FDA-Public Use
  Company Number: ZANA001144

PATIENT
  Age: 73 Year
  Sex: Female

DRUGS (2)
  1. TIZANIDINE HCL [Suspect]
     Indication: PAIN
     Dosage: 8 MG DAILY ORAL
     Route: 048
     Dates: start: 20011008, end: 20020208
  2. OXAPROZIN [Suspect]
     Indication: PAIN
     Dosage: 1200 MG DAILY ORAL
     Route: 048
     Dates: start: 20011008, end: 20020208

REACTIONS (2)
  - ANAEMIA [None]
  - GASTRITIS [None]
